FAERS Safety Report 4959809-8 (Version None)
Quarter: 2006Q1

REPORT INFORMATION
  Report Type: 
  Country: None (occurrence: None)
  Receive Date: 20060324
  Receipt Date: 20060314
  Transmission Date: 20060701
  Serious: Yes (Death)
  Sender: FDA-Public Use
  Company Number: HQWYE342715MAR06

PATIENT
  Sex: Male

DRUGS (1)
  1. PANTOZOL (PANTOPRAZOLE, UNSPEC) [Suspect]

REACTIONS (2)
  - HEPATIC ENZYME INCREASED [None]
  - HYPERSENSITIVITY [None]
